FAERS Safety Report 4607088-3 (Version None)
Quarter: 2005Q1

REPORT INFORMATION
  Report Type: 
  Country: None (occurrence: None)
  Receive Date: 20050309
  Receipt Date: 20050221
  Transmission Date: 20050727
  Serious: Yes (Hospitalization, Disabling, Other)
  Sender: FDA-Public Use
  Company Number: USA041082484

PATIENT
  Age: 58 Year
  Sex: Male
  Weight: 59 kg

DRUGS (9)
  1. HUMALOG [Suspect]
     Indication: DIABETES MELLITUS
     Dates: start: 20010101
  2. HUMULIN R [Suspect]
     Dates: start: 19690101, end: 20010101
  3. HUMULIN N [Suspect]
     Dates: start: 19690101, end: 20010101
  4. LANTUS [Concomitant]
  5. PHENOBARBITAL [Suspect]
  6. DEPAKOTE [Concomitant]
  7. XANAX (ALPRAZOLAM DUM) [Concomitant]
  8. METHADONE [Concomitant]
  9. NEURONTIN (GABAPENTIN PFIZER) [Concomitant]

REACTIONS (24)
  - ANXIETY [None]
  - BLOOD GLUCOSE DECREASED [None]
  - BLOOD GLUCOSE INCREASED [None]
  - CATARACT [None]
  - DEPRESSION [None]
  - DIABETES MELLITUS INADEQUATE CONTROL [None]
  - DRUG DEPENDENCE [None]
  - DRUG EFFECT DECREASED [None]
  - FALL [None]
  - GRAND MAL CONVULSION [None]
  - IMPAIRED WORK ABILITY [None]
  - INGUINAL HERNIA [None]
  - INJECTION SITE HAEMORRHAGE [None]
  - KETOACIDOSIS [None]
  - LYMPHADENOPATHY [None]
  - MEDICATION ERROR [None]
  - MENTAL DISORDER [None]
  - NEUROPATHY [None]
  - PHARMACEUTICAL PRODUCT COMPLAINT [None]
  - PYREXIA [None]
  - SUICIDE ATTEMPT [None]
  - UPPER LIMB FRACTURE [None]
  - VIRAL HEPATITIS CARRIER [None]
  - WRIST FRACTURE [None]
